FAERS Safety Report 8215900-4 (Version None)
Quarter: 2012Q1

REPORT INFORMATION
  Report Type: 
  Country: None (occurrence: None)
  Receive Date: 20120316
  Receipt Date: 20120313
  Transmission Date: 20120608
  Serious: Yes (Death)
  Sender: FDA-Public Use
  Company Number: US-JNJFOC-20120306495

PATIENT
  Age: 6 Year
  Sex: Female

DRUGS (2)
  1. DOXORUBICIN HCL [Suspect]
     Indication: BONE SARCOMA
     Dosage: NEOADJUVANT CHEMOTHERAPY PROTOCOL  FOR 12 WEEKS
     Route: 042
  2. DOXORUBICIN HCL [Suspect]
     Dosage: SUBSEQUENT ADJUVANT THERAPY FOR 14 WEEKS AFTER RECONSTRUCTION
     Route: 042

REACTIONS (1)
  - LEUKAEMIA [None]
